FAERS Safety Report 4364415-2 (Version None)
Quarter: 2004Q2

REPORT INFORMATION
  Report Type: 
  Country: None (occurrence: None)
  Receive Date: 20040521
  Receipt Date: 20040511
  Transmission Date: 20050107
  Serious: Yes (Other)
  Sender: FDA-Public Use
  Company Number: 2004031735

PATIENT
  Age: 11 Year
  Sex: Female
  Weight: 40.8237 kg

DRUGS (2)
  1. ROLAIDS [Suspect]
     Indication: STOMACH DISCOMFORT
     Dosage: 12 TABLETS WITHIN 1.5 HRS TWO TIMES, ORAL
     Route: 048
     Dates: start: 20040502, end: 20040509
  2. TILACTASE (TILACTASE) [Suspect]
     Dosage: 1 TABLET TWO DIFFERENT TIMES, ORAL
     Route: 048
     Dates: start: 20040502, end: 20040509

REACTIONS (6)
  - ABDOMINAL PAIN UPPER [None]
  - CONSTIPATION [None]
  - DEHYDRATION [None]
  - DIARRHOEA [None]
  - FLATULENCE [None]
  - HEADACHE [None]
